FAERS Safety Report 6138376-X (Version None)
Quarter: 2009Q1

REPORT INFORMATION
  Report Type: 
  Country: None (occurrence: None)
  Receive Date: 20090331
  Receipt Date: 20090324
  Transmission Date: 20090719
  Serious: Yes (Other)
  Sender: FDA-Public Use
  Company Number: US-BAYER-200912945NA

PATIENT
  Age: 91 Year
  Sex: Male
  Weight: 70 kg

DRUGS (12)
  1. NEXAVAR [Suspect]
     Indication: METASTATIC RENAL CELL CARCINOMA
     Dosage: TOTAL DAILY DOSE: 400 MG  UNIT DOSE: 200 MG
     Route: 048
     Dates: start: 20090131, end: 20090202
  2. OXYCONTIN [Concomitant]
     Dosage: TOTAL DAILY DOSE: 40 MG
     Route: 048
  3. BETOPTIC S [Concomitant]
     Dosage: TOTAL DAILY DOSE: 2 GTT
     Route: 047
  4. SYNTHROID [Concomitant]
     Dosage: TOTAL DAILY DOSE: 100 ?G
     Route: 048
  5. PRILOSEC [Concomitant]
     Dosage: TOTAL DAILY DOSE: 20 MG
     Route: 048
  6. DIOVAN [Concomitant]
     Dosage: 160/12.5
     Route: 048
  7. MEGACE [Concomitant]
     Dosage: TOTAL DAILY DOSE: 20 MG
     Route: 048
  8. VITAMIN [Concomitant]
     Dosage: TOTAL DAILY DOSE: 1 DF
     Route: 048
  9. COLACE [Concomitant]
     Dosage: TOTAL DAILY DOSE: 3 DF
     Route: 048
  10. SENOKOT [Concomitant]
     Dosage: TOTAL DAILY DOSE: 2 DF
     Route: 048
  11. SERTRALINE HCL [Concomitant]
     Dosage: TOTAL DAILY DOSE: 50 MG
     Route: 048
  12. PERCOCET [Concomitant]
     Dosage: 7.5/500
     Route: 048

REACTIONS (5)
  - ASTHENIA [None]
  - COMMUNICATION DISORDER [None]
  - FALL [None]
  - HYPOPHAGIA [None]
  - PERFORMANCE STATUS DECREASED [None]
